FAERS Safety Report 6755866-7 (Version None)
Quarter: 2010Q2

REPORT INFORMATION
  Report Type: 
  Country: None (occurrence: None)
  Receive Date: 20100604
  Receipt Date: 20100526
  Transmission Date: 20101027
  Serious: Yes (Hospitalization)
  Sender: FDA-Public Use
  Company Number: FR-ASTRAZENECA-2010SE24289

PATIENT
  Age: 903 Month
  Sex: Female

DRUGS (8)
  1. NEXIUM [Suspect]
     Route: 048
  2. PROZAC [Suspect]
     Route: 048
     Dates: end: 20091017
  3. NEBILOX [Suspect]
     Route: 048
     Dates: end: 20091017
  4. INIPOMP [Suspect]
     Route: 048
     Dates: end: 20091017
  5. SOLUPRED [Suspect]
     Route: 048
     Dates: end: 20091017
  6. EFFEXOR [Suspect]
     Route: 048
     Dates: start: 20091017, end: 20091113
  7. XANAX [Suspect]
     Route: 048
     Dates: start: 20091103
  8. BIPROFENID [Suspect]
     Route: 048
     Dates: start: 20091104, end: 20091109

REACTIONS (1)
  - ACCOMMODATION DISORDER [None]
